FAERS Safety Report 20089290 (Version 1)
Quarter: 2021Q4

REPORT INFORMATION
  Report Type: Spontaneous
  Country: US (occurrence: US)
  Receive Date: 20211119
  Receipt Date: 20211119
  Transmission Date: 20220303
  Serious: Yes (Other)
  Sender: FDA-Public Use
  Company Number: US-AUROBINDO-AUR-APL-2021-047131

PATIENT
  Age: 66 Year
  Sex: Male

DRUGS (6)
  1. FLUCONAZOLE [Suspect]
     Active Substance: FLUCONAZOLE
     Indication: Meningitis coccidioides
     Dosage: 400 MILLIGRAM, ONCE A DAY
     Route: 048
  2. VORICONAZOLE [Suspect]
     Active Substance: VORICONAZOLE
     Indication: Meningitis coccidioides
     Dosage: UNK
     Route: 005
  3. AMPHOTERICIN B [Suspect]
     Active Substance: AMPHOTERICIN B
     Indication: Meningitis coccidioides
     Dosage: UNK
     Route: 037
  4. AMPHOTERICIN B [Suspect]
     Active Substance: AMPHOTERICIN B
     Indication: Meningitis coccidioides
     Dosage: 5 MILLIGRAM/KILOGRAM, ONCE A DAY
     Route: 042
  5. FLUCONAZOLE [Suspect]
     Active Substance: FLUCONAZOLE
     Indication: Meningitis coccidioides
     Dosage: ONCE A DAY (800-1200 MILLIGRAM)
     Route: 042
  6. ISAVUCONAZOLE [Suspect]
     Active Substance: ISAVUCONAZOLE
     Indication: Meningitis coccidioides
     Dosage: UNK
     Route: 065

REACTIONS (1)
  - Treatment failure [Unknown]
